FAERS Safety Report 15003035 (Version 1)
Quarter: 2018Q2

REPORT INFORMATION
  Report Type: Spontaneous
  Country: FI (occurrence: FI)
  Receive Date: 20180612
  Receipt Date: 20180612
  Transmission Date: 20180711
  Serious: Yes (Hospitalization, Other)
  Sender: FDA-Public Use
  Company Number: FI-ABBVIE-16K-055-1604649-00

PATIENT
  Age: 22 Year
  Sex: Female

DRUGS (21)
  1. TREXAN [Concomitant]
     Active Substance: METHOTREXATE SODIUM
     Indication: PRODUCT USED FOR UNKNOWN INDICATION
     Dates: start: 200003, end: 200402
  2. TREXAN [Concomitant]
     Active Substance: METHOTREXATE SODIUM
  3. PRED FORTE [Concomitant]
     Active Substance: PREDNISOLONE ACETATE
  4. ZADITEN [Concomitant]
     Active Substance: KETOTIFEN FUMARATE
     Indication: PRODUCT USED FOR UNKNOWN INDICATION
  5. TREXAN [Concomitant]
     Active Substance: METHOTREXATE SODIUM
     Dates: start: 2005, end: 20060201
  6. FOLIC ACID. [Concomitant]
     Active Substance: FOLIC ACID
     Indication: PRODUCT USED FOR UNKNOWN INDICATION
  7. FOLIC ACID. [Concomitant]
     Active Substance: FOLIC ACID
  8. NUVARING [Concomitant]
     Active Substance: ETHINYL ESTRADIOL\ETONOGESTREL
     Indication: PRODUCT USED FOR UNKNOWN INDICATION
     Dosage: 1 RING
  9. FML FORTE [Concomitant]
     Active Substance: FLUOROMETHOLONE
     Indication: PRODUCT USED FOR UNKNOWN INDICATION
     Dates: start: 20010222
  10. HUMIRA [Suspect]
     Active Substance: ADALIMUMAB
     Route: 058
     Dates: start: 20101012, end: 2015
  11. TREXAN [Concomitant]
     Active Substance: METHOTREXATE SODIUM
     Dates: start: 20070109
  12. TREXAN [Concomitant]
     Active Substance: METHOTREXATE SODIUM
  13. FML FORTE [Concomitant]
     Active Substance: FLUOROMETHOLONE
     Dosage: AS NEEDED
  14. PRED FORTE [Concomitant]
     Active Substance: PREDNISOLONE ACETATE
     Indication: IRITIS
     Dosage: EVERY OTHER HOUR
  15. HUMIRA [Suspect]
     Active Substance: ADALIMUMAB
     Indication: IRITIS
     Route: 058
     Dates: start: 20070222, end: 2010
  16. TREXAN [Concomitant]
     Active Substance: METHOTREXATE SODIUM
     Dates: start: 20060201
  17. CALCICHEW D3 FORTE LEMON [Concomitant]
     Indication: PRODUCT USED FOR UNKNOWN INDICATION
     Dosage: 500 MG/10 MICROGRAM X1
  18. HUMIRA [Suspect]
     Active Substance: ADALIMUMAB
     Route: 058
     Dates: start: 2016
  19. TREXAN [Concomitant]
     Active Substance: METHOTREXATE SODIUM
     Dates: start: 20070216
  20. CALCICHEW D3 FORTE LEMON [Concomitant]
     Dosage: FORM STRENGTH:500 MG/10 MICROGRAM?DOSAGE: 1 TABLET 1-2 TIMES A DAY
  21. SIBICORT [Concomitant]
     Indication: PRODUCT USED FOR UNKNOWN INDICATION
     Dosage: FORM STRENGTH: 10/10 MG/G?DOSAGE: 1 LAYER 1-2 TIMES A DAY, AS NEEDED/RESPONSE

REACTIONS (19)
  - Iritis [Recovering/Resolving]
  - Normal newborn [Unknown]
  - Iritis [Unknown]
  - Exposure during pregnancy [Unknown]
  - Hypopyon [Recovering/Resolving]
  - Cataract subcapsular [Unknown]
  - Red blood cell sedimentation rate increased [Unknown]
  - Musculoskeletal pain [Unknown]
  - Gastroenteritis salmonella [Unknown]
  - Product use in unapproved indication [Unknown]
  - Arthralgia [Unknown]
  - Gastroenteritis [Unknown]
  - White blood cell count increased [Unknown]
  - Tendonitis [Recovered/Resolved]
  - Eye pain [Recovering/Resolving]
  - Anterior chamber fibrin [Recovering/Resolving]
  - Arthritis reactive [Unknown]
  - Joint swelling [Recovering/Resolving]
  - Arthralgia [Recovering/Resolving]

NARRATIVE: CASE EVENT DATE: 20070222
